FAERS Safety Report 15105394 (Version 2)
Quarter: 2018Q3

REPORT INFORMATION
  Report Type: Spontaneous
  Country: JP (occurrence: JP)
  Receive Date: 20180704
  Receipt Date: 20180813
  Transmission Date: 20181010
  Serious: Yes (Other)
  Sender: FDA-Public Use
  Company Number: JP-TEVA-2018-JP-919182

PATIENT
  Age: 8 Decade
  Sex: Male

DRUGS (3)
  1. OXALIPLATIN. [Suspect]
     Active Substance: OXALIPLATIN
     Indication: METASTATIC GASTRIC CANCER
     Dosage: 3 WEEKS; 19 COURSES
     Route: 065
  2. TS?1 [Suspect]
     Active Substance: GIMERACIL\OTERACIL\TEGAFUR
     Indication: METASTATIC GASTRIC CANCER
     Dosage: 80MG FOR 4 WEEKS FOR A DURATION OF 6 MONTHS [SIC]
     Route: 065
  3. TS?1 [Suspect]
     Active Substance: GIMERACIL\OTERACIL\TEGAFUR
     Indication: METASTATIC GASTRIC CANCER
     Dosage: 80 MG ADMINISTERED FOR 2 WEEKS, 19 COURSES AS PART OF SOX THERAPY (INTERVAL FOR THERAPY 1 YEAR)
     Route: 065

REACTIONS (2)
  - Condition aggravated [Unknown]
  - Renal impairment [Unknown]
